FAERS Safety Report 4366386-1 (Version None)
Quarter: 2004Q2

REPORT INFORMATION
  Report Type: 
  Country: None (occurrence: None)
  Receive Date: 20040526
  Receipt Date: 20040526
  Transmission Date: 20050107
  Serious: Yes (Other)
  Sender: FDA-Public Use
  Company Number: None

PATIENT
  Age: 49 Year
  Sex: Female
  Weight: 63.05 kg

DRUGS (1)
  1. DIAZEPAM [Suspect]
     Dosage: 10 MG QID PO
     Route: 048
     Dates: start: 20040227

REACTIONS (3)
  - BLISTER [None]
  - NASAL SINUS DRAINAGE [None]
  - SKIN IRRITATION [None]
